FAERS Safety Report 9412814 (Version 1)
Quarter: 2013Q3

REPORT INFORMATION
  Report Type: Spontaneous
  Country: US (occurrence: US)
  Receive Date: 20130722
  Receipt Date: 20130722
  Transmission Date: 20140515
  Serious: Yes (Hospitalization)
  Sender: FDA-Public Use
  Company Number: US-BAYER-2013-088189

PATIENT
  Age: 27 Year
  Sex: Female
  Weight: 100.23 kg

DRUGS (5)
  1. SAFYRAL [Suspect]
  2. PROZAC [Concomitant]
     Dosage: 10 MG, OD
     Route: 048
  3. WELLBUTRIN SR [Concomitant]
     Dosage: 150 MG, OD
     Route: 048
  4. SYNTHROID [Concomitant]
     Dosage: 25 MCG, QD
     Route: 048
  5. CLONAZEPAM [Concomitant]
     Dosage: 0.5 MG, TID
     Route: 048

REACTIONS (1)
  - Pulmonary embolism [Recovered/Resolved]
